FAERS Safety Report 12671442 (Version 1)
Quarter: 2016Q3

REPORT INFORMATION
  Report Type: Report from Study
  Country: US (occurrence: US)
  Receive Date: 20160822
  Receipt Date: 20160822
  Transmission Date: 20161109
  Serious: Yes (Hospitalization)
  Sender: FDA-Public Use
  Company Number: US-JNJFOC-20160811864

PATIENT
  Age: 88 Year
  Sex: Male
  Weight: 79.38 kg

DRUGS (1)
  1. ZYTIGA [Suspect]
     Active Substance: ABIRATERONE ACETATE
     Indication: PROSTATE CANCER METASTATIC
     Route: 048
     Dates: start: 20151104, end: 20160810

REACTIONS (3)
  - Dehydration [Not Recovered/Not Resolved]
  - Blood electrolytes abnormal [Not Recovered/Not Resolved]
  - Eastern Cooperative Oncology Group performance status worsened [Not Recovered/Not Resolved]

NARRATIVE: CASE EVENT DATE: 20160810
